FAERS Safety Report 21768394 (Version 1)
Quarter: 2022Q4

REPORT INFORMATION
  Report Type: Other
  Country: US (occurrence: None)
  Receive Date: 20221222
  Receipt Date: 20221222
  Transmission Date: 20230112
  Serious: Yes (Other)
  Sender: FDA-Public Use
  Company Number: US-ROCHE-3247651

PATIENT
  Age: 67 Year
  Sex: Female

DRUGS (3)
  1. ESBRIET [Suspect]
     Active Substance: PIRFENIDONE
     Indication: Idiopathic pulmonary fibrosis
     Dosage: 1 TABLET, 267 MG THREE TIMES A DAY WITH MEALS ;ONGOING: YES
     Route: 048
     Dates: start: 20221219
  2. ESBRIET [Suspect]
     Active Substance: PIRFENIDONE
     Route: 048
     Dates: start: 20221115
  3. ESBRIET [Suspect]
     Active Substance: PIRFENIDONE
     Indication: Idiopathic pulmonary fibrosis
     Dosage: FROM DAY 1 TO DAY 7; 267 MG TO BE TAKEN BY MOUTH 3 TIMES A DAY) THE DAY 8 TO DAY 14; 534  TO BE TAKE
     Route: 048
     Dates: start: 20221115

REACTIONS (4)
  - Diabetes mellitus [Unknown]
  - Dizziness [Recovering/Resolving]
  - Headache [Recovering/Resolving]
  - Nausea [Recovering/Resolving]

NARRATIVE: CASE EVENT DATE: 20221219
